FAERS Safety Report 16239207 (Version 1)
Quarter: 2019Q2

REPORT INFORMATION
  Report Type: Spontaneous
  Country: US (occurrence: US)
  Receive Date: 20190425
  Receipt Date: 20190425
  Transmission Date: 20190711
  Serious: No
  Sender: FDA-Public Use
  Company Number: US-AMNEAL PHARMACEUTICALS-2019AMN00294

PATIENT
  Sex: Male
  Weight: 79.3 kg

DRUGS (2)
  1. SILDENAFIL. [Suspect]
     Active Substance: SILDENAFIL
     Indication: ERECTILE DYSFUNCTION
     Dosage: 1 TABLETS, AS NEEDED
     Route: 048
     Dates: start: 20190207
  2. SILDENAFIL. [Suspect]
     Active Substance: SILDENAFIL
     Dosage: 1 TABLETS, AS NEEDED
     Route: 048
     Dates: start: 20190207

REACTIONS (2)
  - Drug ineffective for unapproved indication [Not Recovered/Not Resolved]
  - Product substitution issue [Not Recovered/Not Resolved]
